FAERS Safety Report 9155388 (Version 1)
Quarter: 2013Q1

REPORT INFORMATION
  Report Type: Spontaneous
  Country: US (occurrence: US)
  Receive Date: 20130311
  Receipt Date: 20130311
  Transmission Date: 20140127
  Serious: Yes (Other)
  Sender: FDA-Public Use
  Company Number: US-PFIZER INC-2013082011

PATIENT
  Age: 85 Year
  Sex: Female
  Weight: 76.19 kg

DRUGS (1)
  1. LYRICA [Suspect]
     Indication: NEUROPATHY PERIPHERAL
     Dosage: 50 MG, UNK

REACTIONS (3)
  - Blindness [Unknown]
  - Retinal vein occlusion [Unknown]
  - Cerebrovascular accident [Unknown]
